FAERS Safety Report 18928427 (Version 1)
Quarter: 2021Q1

REPORT INFORMATION
  Report Type: Spontaneous
  Country: US (occurrence: US)
  Receive Date: 20210223
  Receipt Date: 20210223
  Transmission Date: 20210420
  Serious: No
  Sender: FDA-Public Use
  Company Number: None

PATIENT
  Age: 65 Year
  Sex: Male

DRUGS (1)
  1. ATENOLOL TAB [Suspect]
     Active Substance: ATENOLOL
     Route: 048

REACTIONS (2)
  - Headache [None]
  - Product odour abnormal [None]
